FAERS Safety Report 17808009 (Version 2)
Quarter: 2020Q2

REPORT INFORMATION
  Report Type: Spontaneous
  Country: CA (occurrence: CA)
  Receive Date: 20200520
  Receipt Date: 20200610
  Transmission Date: 20200714
  Serious: Yes (Hospitalization, Other)
  Sender: FDA-Public Use
  Company Number: CA-TEVA-2020-CA-1237065

PATIENT
  Age: 46 Year
  Sex: Female
  Weight: 73 kg

DRUGS (13)
  1. FLUOROURACIL. [Suspect]
     Active Substance: FLUOROURACIL
     Indication: PRODUCT USED FOR UNKNOWN INDICATION
     Route: 065
  2. DEXAMETHASONE. [Suspect]
     Active Substance: DEXAMETHASONE
     Indication: PROPHYLAXIS OF NAUSEA AND VOMITING
     Route: 065
  3. GRANISETRON [Concomitant]
     Active Substance: GRANISETRON
     Route: 042
  4. PROCHLORAZINE [Concomitant]
     Route: 065
  5. FOLINIC ACID [Suspect]
     Active Substance: LEUCOVORIN
     Indication: PRODUCT USED FOR UNKNOWN INDICATION
     Route: 065
  6. FLUOROURACIL. [Suspect]
     Active Substance: FLUOROURACIL
     Route: 042
  7. FLUOROURACIL. [Suspect]
     Active Substance: FLUOROURACIL
     Route: 065
  8. ELOXATIN [Suspect]
     Active Substance: OXALIPLATIN
     Indication: COLON CANCER
     Route: 042
  9. FOLINIC ACID [Suspect]
     Active Substance: LEUCOVORIN
     Route: 065
  10. BEVACIZUMAB. [Suspect]
     Active Substance: BEVACIZUMAB
     Indication: COLORECTAL CANCER METASTATIC
     Route: 065
  11. APREPITANT. [Concomitant]
     Active Substance: APREPITANT
     Route: 048
  12. IRINOTECAN HYDROCHOLRIDE [Suspect]
     Active Substance: IRINOTECAN HYDROCHLORIDE
     Indication: PRODUCT USED FOR UNKNOWN INDICATION
     Route: 065
  13. FOLINIC ACID [Suspect]
     Active Substance: LEUCOVORIN
     Route: 042

REACTIONS (4)
  - Toxicity to various agents [Unknown]
  - Pancreatitis acute [Unknown]
  - Diabetic ketoacidosis [Unknown]
  - Neoplasm progression [Unknown]
